FAERS Safety Report 9368600 (Version 1)
Quarter: 2013Q2

REPORT INFORMATION
  Report Type: Spontaneous
  Country: US (occurrence: US)
  Receive Date: 20130626
  Receipt Date: 20130626
  Transmission Date: 20140414
  Serious: No
  Sender: FDA-Public Use
  Company Number: US-ASTELLAS-2013US000674

PATIENT
  Age: 46 Year
  Sex: Female
  Weight: 107 kg

DRUGS (12)
  1. VESICARE [Suspect]
     Indication: BLADDER DISORDER
     Dosage: 5 MG, UID/QD
     Route: 048
     Dates: start: 2011
  2. ADVAIR [Concomitant]
     Indication: ASTHMA
     Dosage: 250/50, BID
     Route: 065
  3. FLONASE [Concomitant]
     Indication: HYPERSENSITIVITY
     Dosage: 2 SPRAYS EACH NOSTRIL, UID/QD
     Route: 045
  4. MELOXICAM [Concomitant]
     Indication: ARTHRITIS
     Dosage: 7.5 MG, UID/QD
     Route: 065
  5. BUPROPION [Concomitant]
     Indication: BIPOLAR I DISORDER
     Dosage: 150 MG, BID
     Route: 065
  6. OMEPRAZOLE [Concomitant]
     Indication: GASTROOESOPHAGEAL REFLUX DISEASE
     Dosage: 40 MG, UID/QD
     Route: 065
  7. LEVOTHYROXINE [Concomitant]
     Indication: HYPOTHYROIDISM
     Dosage: 25 UG, UID/QD
     Route: 065
  8. VICODIN [Concomitant]
     Indication: PAIN
     Dosage: 5 MG, PRN
     Route: 065
  9. TRAZODONE [Concomitant]
     Indication: INSOMNIA
     Dosage: 100 MG, UID/QD
     Route: 065
  10. VITAMIN B COMPLEX WITH C [Concomitant]
     Indication: PRODUCT USED FOR UNKNOWN INDICATION
     Dosage: UNK
     Route: 065
  11. MULTIVITAMINS, PLAIN [Concomitant]
     Indication: PRODUCT USED FOR UNKNOWN INDICATION
     Dosage: UNK
     Route: 065
  12. TRAMADOL [Suspect]

REACTIONS (1)
  - Influenza [Unknown]
